FAERS Safety Report 4314108-2 (Version None)
Quarter: 2004Q1

REPORT INFORMATION
  Report Type: 
  Country: None (occurrence: None)
  Receive Date: 20040305
  Receipt Date: 20030409
  Transmission Date: 20041129
  Serious: Yes (Other)
  Sender: FDA-Public Use
  Company Number: 200316259BWH

PATIENT
  Age: 26 Year
  Sex: Female
  Weight: 76 kg

DRUGS (33)
  1. CIPRO IV [Suspect]
     Indication: CELLULITIS
     Dosage: 400 MG, BID; INTRAVENOUS (SEE IMAGE)
     Route: 042
     Dates: start: 20030404, end: 20030412
  2. CIPRO IV [Suspect]
     Indication: PNEUMONIA
     Dosage: 400 MG, BID; INTRAVENOUS (SEE IMAGE)
     Route: 042
     Dates: start: 20030404, end: 20030412
  3. CIPRO IV [Suspect]
     Indication: CELLULITIS
     Dosage: 400 MG, BID; INTRAVENOUS (SEE IMAGE)
     Route: 042
     Dates: start: 20030427, end: 20030505
  4. CIPRO IV [Suspect]
     Indication: PNEUMONIA
     Dosage: 400 MG, BID; INTRAVENOUS (SEE IMAGE)
     Route: 042
     Dates: start: 20030427, end: 20030505
  5. CIPRO IV [Suspect]
     Indication: CELLULITIS
     Dosage: 400 MG, BID; INTRAVENOUS (SEE IMAGE)
     Route: 042
     Dates: start: 20030330
  6. CIPRO IV [Suspect]
     Indication: PNEUMONIA
     Dosage: 400 MG, BID; INTRAVENOUS (SEE IMAGE)
     Route: 042
     Dates: start: 20030330
  7. PHENYTOIN [Suspect]
     Indication: CONVULSION
     Dosage: OTHER; 100 MG, TID OTHER; OTHER
     Route: 050
     Dates: start: 20030214, end: 20030330
  8. PHENYTOIN [Suspect]
     Indication: CONVULSION
     Dosage: OTHER; 100 MG, TID OTHER; OTHER
     Route: 050
     Dates: start: 20030403, end: 20030407
  9. PHENYTOIN [Suspect]
     Indication: CONVULSION
     Dosage: OTHER; 100 MG, TID OTHER; OTHER
     Route: 050
     Dates: start: 20030408
  10. DIPHENHYDRAMINE HCL [Concomitant]
  11. METOCLOPRAMIDE [Concomitant]
  12. GENTAMICIN [Concomitant]
  13. AZTREONAM [Concomitant]
  14. VANCOMYCIN HYDROCHLORIDE [Concomitant]
  15. TMP/SMK [Concomitant]
  16. TOBRAMYCIN [Concomitant]
  17. METRONIDAZOLE [Concomitant]
  18. CEFIPIME (CEFEPIME HYDROCHLORIDE) [Concomitant]
  19. AMIKACIN [Concomitant]
  20. ALBUTEROL [Concomitant]
  21. ENOXAPARIN SODIUM [Concomitant]
  22. PHENYTOIN [Concomitant]
  23. AZTREONAM [Concomitant]
  24. WARFARIN SODIUM [Concomitant]
  25. VANCOMYCIN HYDROCHLORIDE [Concomitant]
  26. SULFAMETHOXAZOLE + TRIMETHOPRIM [Concomitant]
  27. TOB [Concomitant]
  28. CEFIPIME [Concomitant]
  29. AMIKACIN [Concomitant]
  30. ALBUTEROL [Concomitant]
  31. ENOXAPARIN SODIUM [Concomitant]
  32. BACTRIM [Concomitant]
  33. CIPRO SUSPENSION [Concomitant]

REACTIONS (1)
  - CONVULSION [None]
